FAERS Safety Report 8205701-5 (Version None)
Quarter: 2012Q1

REPORT INFORMATION
  Report Type: 
  Country: None (occurrence: None)
  Receive Date: 20120313
  Receipt Date: 20120301
  Transmission Date: 20120608
  Serious: Yes (Hospitalization, Other)
  Sender: FDA-Public Use
  Company Number: US-ELI_LILLY_AND_COMPANY-US201004003356

PATIENT
  Sex: Female

DRUGS (5)
  1. FORTEO [Suspect]
     Dosage: 20 UG, QD
     Route: 058
  2. FORTEO [Suspect]
     Dosage: 20 UG, QD
     Route: 058
     Dates: end: 20110106
  3. FORTEO [Suspect]
     Dosage: 20 UG, QD
     Route: 058
  4. FORTEO [Suspect]
     Indication: OSTEOPOROSIS
     Dosage: 20 UG, QD
     Route: 058
     Dates: start: 20100301
  5. FORTEO [Suspect]
     Dosage: 20 UG, DAILY (1/D)
     Route: 058
     Dates: start: 20110109

REACTIONS (11)
  - STRESS [None]
  - APHASIA [None]
  - MYASTHENIA GRAVIS CRISIS [None]
  - NASOPHARYNGITIS [None]
  - MALAISE [None]
  - PERTUSSIS [None]
  - DYSPNOEA [None]
  - DIARRHOEA [None]
  - BLOOD CALCIUM INCREASED [None]
  - FEEDING DISORDER [None]
  - HAEMOGLOBIN DECREASED [None]
